FAERS Safety Report 6676268-8 (Version None)
Quarter: 2010Q2

REPORT INFORMATION
  Report Type: 
  Country: None (occurrence: None)
  Receive Date: 20100412
  Receipt Date: 20100330
  Transmission Date: 20101027
  Serious: Yes (Death)
  Sender: FDA-Public Use
  Company Number: GB-PURDUE-GBR-2010-0006327

PATIENT
  Sex: Female
  Weight: 61 kg

DRUGS (6)
  1. MST CONTINUS SUSPENSION 20 MG [Suspect]
     Indication: DRUG USE FOR UNKNOWN INDICATION
     Dosage: 20 MG, SINGLE
     Dates: start: 20090317
  2. OXYGEN [Concomitant]
  3. PARACETAMOL [Concomitant]
     Indication: PAIN
     Dosage: 5 ML, QID
     Route: 048
  4. AMPICILLIN SODIUM/SULBACTAM SODIUM [Concomitant]
     Indication: URINARY TRACT INFECTION
     Dosage: 10 ML, TID
     Dates: start: 20090316
  5. ASPIRIN [Concomitant]
     Dosage: 75 MG, DAILY
     Dates: end: 20090316
  6. LEVOTHYROXINE SODIUM [Concomitant]
     Indication: HYPOTHYROIDISM
     Dosage: 100 MCG, DAILY

REACTIONS (4)
  - BRONCHOPNEUMONIA [None]
  - INCORRECT DOSE ADMINISTERED [None]
  - MYOCARDIAL ISCHAEMIA [None]
  - PRODUCT LABEL ISSUE [None]
